FAERS Safety Report 11061833 (Version 1)
Quarter: 2015Q2

REPORT INFORMATION
  Report Type: Spontaneous
  Country: US (occurrence: None)
  Receive Date: 20150423
  Receipt Date: 20150423
  Transmission Date: 20150821
  Serious: Yes (Life-Threatening, Hospitalization)
  Sender: FDA-Public Use
  Company Number: None

PATIENT
  Age: 13 Year
  Sex: Female
  Weight: 58.97 kg

DRUGS (1)
  1. TAMIFLU [Suspect]
     Active Substance: OSELTAMIVIR PHOSPHATE
     Indication: PHARYNGITIS STREPTOCOCCAL
     Route: 048
     Dates: start: 20150301, end: 20150307

REACTIONS (1)
  - Seizure [None]

NARRATIVE: CASE EVENT DATE: 20150307
